FAERS Safety Report 10600366 (Version 4)
Quarter: 2015Q2

REPORT INFORMATION
  Report Type: Report from Study
  Country: JP (occurrence: JP)
  Receive Date: 20141123
  Receipt Date: 20150407
  Transmission Date: 20150821
  Serious: Yes (Hospitalization)
  Sender: FDA-Public Use
  Company Number: JP-ROCHE-1494852

PATIENT
  Age: 71 Year
  Sex: Female
  Weight: 58 kg

DRUGS (2)
  1. BEVACIZUMAB [Suspect]
     Active Substance: BEVACIZUMAB
     Indication: BREAST CANCER METASTATIC
     Dosage: DOSAGE UNCERTAIN.
     Route: 041
     Dates: start: 20140916, end: 20141031
  2. PACLITAXEL. [Suspect]
     Active Substance: PACLITAXEL
     Indication: BREAST CANCER METASTATIC
     Dosage: DOSAGE UNCERTAIN.
     Route: 041
     Dates: start: 20140916, end: 20141031

REACTIONS (10)
  - Malaise [Recovered/Resolved]
  - Decreased appetite [Recovered/Resolved]
  - Alopecia [Not Recovered/Not Resolved]
  - Interstitial lung disease [Recovered/Resolved]
  - Hypertension [Not Recovered/Not Resolved]
  - Peripheral sensory neuropathy [Recovered/Resolved]
  - Stomatitis [Recovered/Resolved]
  - Constipation [Recovered/Resolved]
  - Dysgeusia [Not Recovered/Not Resolved]
  - Face oedema [Not Recovered/Not Resolved]

NARRATIVE: CASE EVENT DATE: 20140924
